FAERS Safety Report 4972101-0 (Version None)
Quarter: 2006Q2

REPORT INFORMATION
  Report Type: 
  Country: None (occurrence: None)
  Receive Date: 20060412
  Receipt Date: 20060412
  Transmission Date: 20061013
  Serious: No
  Sender: FDA-Public Use
  Company Number: None

PATIENT
  Sex: Female
  Weight: 63.5036 kg

DRUGS (1)
  1. XOLAIR [Suspect]
     Indication: ASTHMA
     Dosage: 150 MCG Q MONTH SQ
     Route: 058
     Dates: start: 20060228, end: 20060328

REACTIONS (3)
  - CAROTID ARTERY STENOSIS [None]
  - GAZE PALSY [None]
  - LACUNAR INFARCTION [None]
